FAERS Safety Report 4649769-1 (Version None)
Quarter: 2005Q2

REPORT INFORMATION
  Report Type: 
  Country: None (occurrence: None)
  Receive Date: 20050428
  Receipt Date: 20050418
  Transmission Date: 20051028
  Serious: Yes (Death)
  Sender: FDA-Public Use
  Company Number: 200510257BNE

PATIENT
  Age: 78 Year
  Sex: Male

DRUGS (11)
  1. ASPIRIN [Suspect]
  2. CO-CODAMOL [Suspect]
  3. SPIRIVA [Suspect]
     Indication: CHRONIC OBSTRUCTIVE PULMONARY DISEASE
     Dosage: RESPIRATORY (INHALATION)
     Route: 055
     Dates: start: 20040201
  4. SIMVASTATIN [Suspect]
  5. FRUSEMIDE [Suspect]
  6. NICORANDIL [Suspect]
  7. RABEPRAZOLE SODIUM [Suspect]
  8. SERETIDE [Suspect]
  9. SALBUTAMOL [Suspect]
  10. ISOSORBIDE MONONITRATE [Suspect]
  11. BISOPROLOL [Suspect]

REACTIONS (2)
  - LEFT VENTRICULAR FAILURE [None]
  - MYOCARDIAL ISCHAEMIA [None]
